FAERS Safety Report 4971736-9 (Version None)
Quarter: 2006Q2

REPORT INFORMATION
  Report Type: 
  Country: None (occurrence: None)
  Receive Date: 20060407
  Receipt Date: 20060323
  Transmission Date: 20061013
  Serious: Yes (Hospitalization)
  Sender: FDA-Public Use
  Company Number: MPS1-10509

PATIENT
  Age: 3 Year
  Sex: Female
  Weight: 13.2 kg

DRUGS (1)
  1. ALDURAZYME [Suspect]
     Indication: MUCOPOLYSACCHARIDOSIS I
     Dosage: 8.7 MG QWK IV
     Route: 042
     Dates: start: 20040422

REACTIONS (13)
  - ACIDOSIS [None]
  - CATHETER RELATED COMPLICATION [None]
  - CENTRAL NERVOUS SYSTEM INFECTION [None]
  - CYANOSIS [None]
  - DEVICE OCCLUSION [None]
  - HEART RATE INCREASED [None]
  - HYDROCEPHALUS [None]
  - HYPERGLYCAEMIA [None]
  - PNEUMONIA [None]
  - RESPIRATORY DISTRESS [None]
  - RESPIRATORY RATE INCREASED [None]
  - UPPER RESPIRATORY TRACT INFECTION [None]
  - WHEEZING [None]
